FAERS Safety Report 5336354-1 (Version None)
Quarter: 2007Q2

REPORT INFORMATION
  Report Type: 
  Country: None (occurrence: None)
  Receive Date: 20070523
  Receipt Date: 20070418
  Transmission Date: 20071010
  Serious: Yes (Other)
  Sender: FDA-Public Use
  Company Number: FACT0700074

PATIENT
  Age: 60 Year
  Sex: Female

DRUGS (6)
  1. FACTIVE [Suspect]
     Indication: RESPIRATORY TRACT INFECTION BACTERIAL
     Dosage: ORAL
     Route: 048
     Dates: start: 20070312, end: 20070318
  2. MULTIVITAMIN (ASCORBID ACID, ERGOCALCIFEROL, FOLIC ACID, NICOTINAMIDE, [Concomitant]
  3. ESTRATEST [Concomitant]
  4. ZELNORM [Concomitant]
  5. CITRICAL (CALCIUM CARBONATE) [Concomitant]
  6. ASPIRIN [Concomitant]

REACTIONS (10)
  - DRUG ERUPTION [None]
  - DRUG HYPERSENSITIVITY [None]
  - ERYTHEMA MULTIFORME [None]
  - HEARING IMPAIRED [None]
  - HYPOACUSIS [None]
  - LOCAL SWELLING [None]
  - PAIN OF SKIN [None]
  - PHARYNGEAL OEDEMA [None]
  - PRURITUS [None]
  - SKIN BURNING SENSATION [None]
